FAERS Safety Report 11783100 (Version 4)
Quarter: 2016Q2

REPORT INFORMATION
  Report Type: Spontaneous
  Country: US (occurrence: US)
  Receive Date: 20151127
  Receipt Date: 20160630
  Transmission Date: 20160815
  Serious: Yes (Hospitalization)
  Sender: FDA-Public Use
  Company Number: US-JNJFOC-20151124870

PATIENT
  Age: 49 Year
  Sex: Female

DRUGS (2)
  1. XARELTO [Suspect]
     Active Substance: RIVAROXABAN
     Indication: THROMBOSIS PROPHYLAXIS
     Route: 048
     Dates: start: 20110701, end: 201407
  2. XARELTO [Suspect]
     Active Substance: RIVAROXABAN
     Indication: THROMBOSIS PROPHYLAXIS
     Route: 048
     Dates: start: 20110701, end: 201407

REACTIONS (2)
  - Gastrointestinal haemorrhage [Unknown]
  - Rectal haemorrhage [Unknown]

NARRATIVE: CASE EVENT DATE: 201407
